FAERS Safety Report 17213844 (Version 1)
Quarter: 2019Q4

REPORT INFORMATION
  Report Type: Spontaneous
  Country: CA (occurrence: CA)
  Receive Date: 20191230
  Receipt Date: 20191230
  Transmission Date: 20200122
  Serious: Yes (Other)
  Sender: FDA-Public Use
  Company Number: CA-MYLANLABS-2019M1126884

PATIENT
  Sex: Female
  Weight: 133 kg

DRUGS (12)
  1. LIRAGLUTIDE [Interacting]
     Active Substance: LIRAGLUTIDE
     Dosage: 1.8 MILLIGRAM, QD
     Route: 058
  2. LIRAGLUTIDE [Interacting]
     Active Substance: LIRAGLUTIDE
     Dosage: 0.6 MILLIGRAM, QD
     Route: 058
  3. LIRAGLUTIDE [Interacting]
     Active Substance: LIRAGLUTIDE
     Dosage: UNK UNK
     Route: 058
  4. LIRAGLUTIDE [Interacting]
     Active Substance: LIRAGLUTIDE
     Dosage: 2.4 MILLIGRAM, QD
     Route: 058
  5. LIRAGLUTIDE [Interacting]
     Active Substance: LIRAGLUTIDE
     Dosage: UNK UNK
     Route: 058
  6. LIRAGLUTIDE [Interacting]
     Active Substance: LIRAGLUTIDE
     Dosage: 1.8 MILLIGRAM, QD
     Route: 058
  7. CELEBREX [Concomitant]
     Active Substance: CELECOXIB
     Dosage: UNK
  8. LEVOTHYROXINE. [Interacting]
     Active Substance: LEVOTHYROXINE
     Dosage: UNK
  9. LIRAGLUTIDE [Interacting]
     Active Substance: LIRAGLUTIDE
     Indication: WEIGHT CONTROL
     Dosage: 1.2 MILLIGRAM, QD
     Route: 058
  10. LEVOTHYROXINE. [Suspect]
     Active Substance: LEVOTHYROXINE
     Indication: PRODUCT USED FOR UNKNOWN INDICATION
     Dosage: UNK
  11. LIRAGLUTIDE [Interacting]
     Active Substance: LIRAGLUTIDE
     Dosage: 1.8 MILLIGRAM, QD
     Route: 058
  12. NORVASC [Concomitant]
     Active Substance: AMLODIPINE BESYLATE
     Dosage: UNK

REACTIONS (10)
  - Headache [Unknown]
  - Nausea [Unknown]
  - Depression [Unknown]
  - Eructation [Unknown]
  - Abdominal distension [Unknown]
  - Anxiety [Unknown]
  - Drug interaction [Unknown]
  - Fatigue [Unknown]
  - Diarrhoea [Unknown]
  - Decreased appetite [Unknown]
